FAERS Safety Report 24874418 (Version 1)
Quarter: 2025Q1

REPORT INFORMATION
  Report Type: Report from Study
  Country: US (occurrence: US)
  Receive Date: 20250122
  Receipt Date: 20250122
  Transmission Date: 20250409
  Serious: Yes (Other)
  Sender: ABBVIE
  Company Number: US-ABBVIE-6096205

PATIENT
  Sex: Male

DRUGS (1)
  1. SKYRIZI [Suspect]
     Active Substance: RISANKIZUMAB-RZAA
     Indication: Psoriasis
     Route: 058
     Dates: start: 20220618

REACTIONS (4)
  - Eye operation [Unknown]
  - Intervertebral disc protrusion [Recovering/Resolving]
  - Intervertebral disc disorder [Recovering/Resolving]
  - Abdominal hernia [Recovering/Resolving]
